FAERS Safety Report 6254281-2 (Version None)
Quarter: 2009Q3

REPORT INFORMATION
  Report Type: 
  Country: None (occurrence: None)
  Receive Date: 20090702
  Receipt Date: 20090629
  Transmission Date: 20100115
  Serious: Yes (Other)
  Sender: FDA-Public Use
  Company Number: TR-ROXANE LABORATORIES, INC.-2009-RO-00627RO

PATIENT
  Age: 29 Year
  Sex: Female

DRUGS (1)
  1. TOPIRAMATE [Suspect]
     Dosage: 25 MG

REACTIONS (5)
  - CHOROIDAL EFFUSION [None]
  - CORNEAL DISORDER [None]
  - FLAT ANTERIOR CHAMBER OF EYE [None]
  - LENS DISLOCATION [None]
  - MYOPIA [None]
